FAERS Safety Report 25644088 (Version 1)
Quarter: 2025Q3

REPORT INFORMATION
  Report Type: Other
  Country: GB (occurrence: GB)
  Receive Date: 20250805
  Receipt Date: 20250805
  Transmission Date: 20251020
  Serious: Yes (Other)
  Sender: GLENMARK
  Company Number: GB-GLENMARK PHARMACEUTICALS-2025GMK102557

PATIENT
  Age: 60 Year
  Sex: Female
  Weight: 68 kg

DRUGS (4)
  1. EZETIMIBE [Suspect]
     Active Substance: EZETIMIBE
     Indication: Product used for unknown indication
     Dosage: UNK QD (ONE TO BE TAKEN EACH DAY
     Route: 065
  2. EZETIMIBE [Concomitant]
     Active Substance: EZETIMIBE
     Indication: Blood cholesterol increased
     Route: 065
     Dates: start: 20250701
  3. EZETIMIBE [Concomitant]
     Active Substance: EZETIMIBE
     Indication: Acute myocardial infarction
  4. BEMPEDOIC ACID [Concomitant]
     Active Substance: BEMPEDOIC ACID
     Indication: Product used for unknown indication
     Dosage: UNK, OD (ONE TO BE TAKEN ONCE DAILY)
     Route: 065
     Dates: start: 20250724

REACTIONS (1)
  - Muscle spasms [Recovered/Resolved]
